FAERS Safety Report 4480473-9 (Version None)
Quarter: 2004Q4

REPORT INFORMATION
  Report Type: 
  Country: None (occurrence: None)
  Receive Date: 20041018
  Receipt Date: 20041004
  Transmission Date: 20050328
  Serious: Yes (Other)
  Sender: FDA-Public Use
  Company Number: 205621

PATIENT
  Age: 61 Year
  Sex: Female

DRUGS (1)
  1. AVONEX [Suspect]
     Indication: MULTIPLE SCLEROSIS
     Dosage: 30 MCG QW; IM
     Route: 030
     Dates: start: 20040506

REACTIONS (1)
  - THYROID GLAND CANCER [None]
